FAERS Safety Report 8778042 (Version 2)
Quarter: 2012Q4

REPORT INFORMATION
  Report Type: 
  Country: US (occurrence: US)
  Receive Date: 20120911
  Receipt Date: 20120927
  Transmission Date: 20130627
  Serious: No
  Sender: FDA-Public Use
  Company Number: US-PFIZER INC-2012221462

PATIENT
  Age: 19 Year
  Sex: Female
  Weight: 99 kg

DRUGS (3)
  1. VENLAFAXINE HYDROCHLORIDE [Suspect]
     Dosage: 150 mg (two 75mg capsules) in morninig and one 75mg capsule in the evening
     Route: 048
     Dates: start: 1997, end: 1997
  2. EFFEXOR [Suspect]
     Dosage: 150 mg (two 75mg tablets) in morninig and one 75mg tablet in the evening
     Route: 048
     Dates: start: 1997
  3. EFFEXOR XR [Suspect]
     Dosage: 150 mg (two 75mg capsules) in morninig and one 75mg capsules in the evening
     Route: 048

REACTIONS (3)
  - Drug ineffective [Unknown]
  - Drug intolerance [Unknown]
  - Feeling abnormal [Unknown]
